FAERS Safety Report 6618130-2 (Version None)
Quarter: 2010Q1

REPORT INFORMATION
  Report Type: 
  Country: None (occurrence: None)
  Receive Date: 20100302
  Receipt Date: 20100219
  Transmission Date: 20100710
  Serious: Yes (Hospitalization)
  Sender: FDA-Public Use
  Company Number: WAES 0811ITA00023

PATIENT
  Age: 44 Year
  Sex: Male

DRUGS (10)
  1. TAB MK-0518 [Suspect]
     Indication: HIV INFECTION
     Dosage: 400 MG/BID PO
     Route: 048
     Dates: start: 20060906
  2. VIREAD [Suspect]
     Indication: HIV INFECTION
     Dosage: 300 MG/DAILY PO
     Route: 048
     Dates: start: 20030626, end: 20080930
  3. ZERIT [Suspect]
     Indication: HIV INFECTION
     Dosage: PO; 600 MG/BID/PO
     Route: 048
     Dates: start: 20000404, end: 20080815
  4. ZERIT [Suspect]
     Indication: HIV INFECTION
     Dosage: PO; 600 MG/BID/PO
     Route: 048
     Dates: start: 20080816
  5. PREZISTA [Suspect]
     Indication: HIV INFECTION
     Dosage: 600 MG/BID PO
     Route: 048
     Dates: start: 20060906, end: 20080815
  6. PREZISTA [Suspect]
     Indication: HIV INFECTION
     Dosage: 600 MG/BID PO
     Route: 048
     Dates: start: 20080816
  7. NORVIR [Suspect]
     Indication: HIV INFECTION
     Dosage: 100 MG/BID PO
     Route: 048
     Dates: start: 20050921, end: 20080815
  8. NORVIR [Suspect]
     Indication: HIV INFECTION
     Dosage: 100 MG/BID PO
     Route: 048
     Dates: start: 20080816
  9. TRUVADA [Suspect]
     Indication: HIV INFECTION
     Dates: start: 20060405
  10. TAB BLINDED THERAPY [Suspect]
     Indication: HIV INFECTION
     Dosage: PO
     Route: 048
     Dates: start: 20060405, end: 20060905

REACTIONS (1)
  - DIFFUSE LARGE B-CELL LYMPHOMA [None]
